FAERS Safety Report 23986937 (Version 1)
Quarter: 2024Q2

REPORT INFORMATION
  Report Type: Spontaneous
  Country: GB (occurrence: GB)
  Receive Date: 20240618
  Receipt Date: 20240618
  Transmission Date: 20240716
  Serious: Yes (Disabling)
  Sender: FDA-Public Use
  Company Number: None

PATIENT
  Age: 31 Year
  Sex: Female
  Weight: 130 kg

DRUGS (4)
  1. MOUNJARO [Interacting]
     Active Substance: TIRZEPATIDE
     Indication: Weight control
     Dosage: 2.5 MG, WEEKLY (1/W)
     Route: 065
     Dates: start: 20240520
  2. DESOGESTREL [Interacting]
     Active Substance: DESOGESTREL
     Indication: Hormonal contraception
     Dosage: UNK UNK, UNKNOWN
     Route: 065
     Dates: start: 202210
  3. ACETAMINOPHEN [Concomitant]
     Active Substance: ACETAMINOPHEN
     Indication: Migraine
  4. IBUPROFEN [Concomitant]
     Active Substance: IBUPROFEN
     Indication: Migraine
     Dosage: UNK

REACTIONS (5)
  - Dysmenorrhoea [Unknown]
  - Heavy menstrual bleeding [Recovering/Resolving]
  - Menstruation irregular [Not Recovered/Not Resolved]
  - Migraine [Unknown]
  - Drug interaction [Unknown]

NARRATIVE: CASE EVENT DATE: 20240604
